FAERS Safety Report 7519799-0 (Version None)
Quarter: 2011Q2

REPORT INFORMATION
  Report Type: 
  Country: None (occurrence: None)
  Receive Date: 20110602
  Receipt Date: 20100604
  Transmission Date: 20111010
  Serious: No
  Sender: FDA-Public Use
  Company Number: US-MYLANLABS-BN-1-22895857

PATIENT
  Age: 60 Year
  Sex: Female

DRUGS (7)
  1. HERRON HL127 HAIR, SKIN AND NAIL FORMULA [Concomitant]
  2. CALCIUM CARBONATE [Concomitant]
  3. VITAMIN B6 [Concomitant]
  4. RIMSO-50 [Suspect]
     Indication: CYSTITIS INTERSTITIAL
     Dosage: 50 ML, UNK
     Route: 043
  5. VITAMIN D [Concomitant]
  6. PHENAZOPYRIDINE HCL TAB [Concomitant]
  7. URISPAS [Concomitant]

REACTIONS (9)
  - BLADDER PAIN [None]
  - ABDOMINAL DISCOMFORT [None]
  - URINARY RETENTION [None]
  - RENAL PAIN [None]
  - MUSCLE SPASMS [None]
  - PELVIC PAIN [None]
  - ACTIVITIES OF DAILY LIVING IMPAIRED [None]
  - MUSCULAR WEAKNESS [None]
  - ABDOMINAL PAIN LOWER [None]
